FAERS Safety Report 5409891-9 (Version None)
Quarter: 2007Q3

REPORT INFORMATION
  Report Type: 
  Country: None (occurrence: None)
  Receive Date: 20070809
  Receipt Date: 20070726
  Transmission Date: 20080115
  Serious: Yes (Life-Threatening, Hospitalization)
  Sender: FDA-Public Use
  Company Number: DE-BAUSCH-2007BL002580

PATIENT
  Age: 64 Year
  Sex: Male

DRUGS (1)
  1. TIMOMANN 0.1% AUGENTROPFEN [Suspect]
     Indication: OPEN ANGLE GLAUCOMA
     Route: 047
     Dates: start: 20020101

REACTIONS (1)
  - MYOCARDIAL INFARCTION [None]
